FAERS Safety Report 5019318-7 (Version None)
Quarter: 2006Q2

REPORT INFORMATION
  Report Type: 
  Country: None (occurrence: None)
  Receive Date: 20060606
  Receipt Date: 20060526
  Transmission Date: 20061013
  Serious: Yes (Other)
  Sender: FDA-Public Use
  Company Number: BR-ROCHE-449676

PATIENT
  Age: 79 Year
  Sex: Female
  Weight: 43.8 kg

DRUGS (5)
  1. RIVOTRIL [Suspect]
     Indication: ANXIETY
     Route: 048
     Dates: start: 20060415, end: 20060515
  2. RIVOTRIL [Suspect]
     Route: 048
     Dates: start: 20060215, end: 20060415
  3. LEXOTAN [Concomitant]
     Indication: BIPOLAR DISORDER
     Route: 048
     Dates: start: 19760615
  4. 1 CONCOMITANT DRUG [Concomitant]
     Indication: DEMENTIA
     Dosage: DRUG NAME REPORTED AS ALOES.
     Route: 048
  5. SEROQUEL [Concomitant]
     Indication: BIPOLAR DISORDER
     Route: 048

REACTIONS (3)
  - DELIRIUM [None]
  - HALLUCINATION [None]
  - INSOMNIA [None]
